FAERS Safety Report 22532741 (Version 1)
Quarter: 2023Q2

REPORT INFORMATION
  Report Type: Spontaneous
  Country: RO (occurrence: RO)
  Receive Date: 20230607
  Receipt Date: 20230607
  Transmission Date: 20230722
  Serious: Yes (Death)
  Sender: FDA-Public Use
  Company Number: RO-TAKEDA-2020TUS059675

PATIENT
  Age: 64 Year
  Sex: Male

DRUGS (11)
  1. LENALIDOMIDE [Suspect]
     Active Substance: LENALIDOMIDE
     Indication: Product used for unknown indication
     Dosage: 25 MG, QD
     Route: 065
     Dates: start: 20200526, end: 20201209
  2. DEXAMETHASONE [Suspect]
     Active Substance: DEXAMETHASONE
     Indication: Product used for unknown indication
     Dosage: 40 MG, QD
     Route: 065
     Dates: start: 20200526, end: 20201209
  3. IXAZOMIB [Suspect]
     Active Substance: IXAZOMIB
     Indication: Plasma cell myeloma
     Dosage: 4 MG
     Route: 048
     Dates: start: 202005, end: 20201209
  4. SULFAMETHOXAZOLE\TRIMETHOPRIM [Concomitant]
     Active Substance: SULFAMETHOXAZOLE\TRIMETHOPRIM
     Indication: Plasma cell myeloma
     Dosage: 400 MG, QD
     Route: 065
     Dates: start: 20201212
  5. GABAPENTIN [Concomitant]
     Active Substance: GABAPENTIN
     Indication: Pain in extremity
     Dosage: 400 MG, QD
     Route: 065
     Dates: start: 20201212
  6. ZALDIAR [Concomitant]
     Active Substance: ACETAMINOPHEN\TRAMADOL HYDROCHLORIDE
     Indication: Pain in extremity
     Dosage: UNK, QD
     Route: 065
     Dates: start: 20201212
  7. ELIQUIS [Concomitant]
     Active Substance: APIXABAN
     Indication: Product used for unknown indication
     Dosage: UNK, BID
     Route: 065
     Dates: start: 20201212
  8. ALLOPURINOL [Concomitant]
     Active Substance: ALLOPURINOL
     Indication: Pain in extremity
     Dosage: UNK UNK, QD
     Route: 065
     Dates: start: 20201212
  9. LYRICA [Concomitant]
     Active Substance: PREGABALIN
     Indication: Pain in extremity
     Dosage: UNK, QD
     Route: 065
     Dates: start: 20201212
  10. CELADRIN [Concomitant]
     Active Substance: MENTHOL
     Indication: Pain in extremity
     Dosage: UNK, QD
     Route: 065
     Dates: start: 20201212
  11. ACYCLOVIR [Concomitant]
     Active Substance: ACYCLOVIR
     Indication: Prophylaxis
     Dosage: UNK, QD
     Route: 065
     Dates: start: 20201212

REACTIONS (1)
  - COVID-19 [Fatal]

NARRATIVE: CASE EVENT DATE: 20201209
